FAERS Safety Report 8322970-1 (Version None)
Quarter: 2012Q2

REPORT INFORMATION
  Report Type: 
  Country: None (occurrence: None)
  Receive Date: 20120430
  Receipt Date: 20120425
  Transmission Date: 20120825
  Serious: Yes (Life-Threatening, Hospitalization, Other)
  Sender: FDA-Public Use
  Company Number: US-ASTRAZENECA-2012SE25291

PATIENT
  Age: 69 Year
  Sex: Female

DRUGS (9)
  1. ADVAIR DISKUS 100/50 [Concomitant]
  2. LISINOPRIL [Suspect]
     Indication: BLOOD PRESSURE ABNORMAL
     Dosage: 30
     Route: 048
  3. NEXIUM [Suspect]
     Indication: GASTROOESOPHAGEAL REFLUX DISEASE
     Route: 048
  4. LIQUID TEARS [Concomitant]
  5. PONTANOL [Concomitant]
  6. MAGNESIUM [Concomitant]
  7. HYDROCHLOROTHIAZIDE [Suspect]
     Indication: BLOOD PRESSURE ABNORMAL
     Dosage: 25
     Route: 065
  8. ASPIRIN [Concomitant]
  9. VENTOLIN [Concomitant]

REACTIONS (11)
  - MALAISE [None]
  - INTENTIONAL DRUG MISUSE [None]
  - CEREBROVASCULAR ACCIDENT [None]
  - ASTHMA [None]
  - ADVERSE EVENT [None]
  - GASTROOESOPHAGEAL REFLUX DISEASE [None]
  - DEVICE MALFUNCTION [None]
  - BREAST CANCER [None]
  - NEOPLASM MALIGNANT [None]
  - EYE DISORDER [None]
  - ATRIAL FIBRILLATION [None]
